FAERS Safety Report 8574360-4 (Version None)
Quarter: 2012Q3

REPORT INFORMATION
  Report Type: 
  Country: None (occurrence: None)
  Receive Date: 20120806
  Receipt Date: 20120730
  Transmission Date: 20120928
  Serious: Yes (Hospitalization)
  Sender: FDA-Public Use
  Company Number: JP-ABBOTT-12P-087-0963793-00

PATIENT
  Sex: Female

DRUGS (3)
  1. LANSOPRAZOLE [Suspect]
     Indication: HELICOBACTER INFECTION
     Dosage: 0.5 CARD (0.5 CARD, 1 IN 1 DAY)
     Route: 048
     Dates: start: 20120613, end: 20120613
  2. LANSOPRAZOLE [Suspect]
     Dosage: 0.5 CARD (0.5 CARD, 1 IN 1 DAY)
     Route: 048
     Dates: start: 20120613, end: 20120613
  3. AMOXICILLIN [Suspect]
     Dosage: 0.5 CARD (0.5 CARD, 1 IN 1 DAY)
     Route: 048
     Dates: start: 20120613, end: 20120613

REACTIONS (5)
  - RASH [None]
  - OEDEMA PERIPHERAL [None]
  - CONVULSION [None]
  - PRURITUS GENERALISED [None]
  - PYREXIA [None]
